FAERS Safety Report 10607308 (Version 1)
Quarter: 2014Q4

REPORT INFORMATION
  Report Type: Spontaneous
  Country: US (occurrence: None)
  Receive Date: 20141124
  Receipt Date: 20141124
  Transmission Date: 20150529
  Serious: Yes (Hospitalization)
  Sender: FDA-Public Use
  Company Number: None

PATIENT
  Age: 74 Year
  Sex: Female
  Weight: 50.8 kg

DRUGS (11)
  1. ZOCOR [Concomitant]
     Active Substance: SIMVASTATIN
  2. CELECOXIB. [Concomitant]
     Active Substance: CELECOXIB
  3. LIALDA [Concomitant]
     Active Substance: MESALAMINE
  4. IMITREX [Concomitant]
     Active Substance: SUMATRIPTAN\SUMATRIPTAN SUCCINATE
  5. TUSSIONEX PENNKINETIC [Concomitant]
     Active Substance: CHLORPHENIRAMINE\HYDROCODONE
  6. NORVASC [Concomitant]
     Active Substance: AMLODIPINE BESYLATE
  7. ENTOCORT [Concomitant]
     Active Substance: BUDESONIDE
  8. CLARINEX [Concomitant]
     Active Substance: DESLORATADINE
  9. DEPAKOTE [Suspect]
     Active Substance: DIVALPROEX SODIUM
     Indication: HEADACHE
     Dosage: RECENT
     Route: 048
  10. PRINIVIL [Concomitant]
     Active Substance: LISINOPRIL
  11. CEFDINIR. [Concomitant]
     Active Substance: CEFDINIR

REACTIONS (3)
  - Confusional state [None]
  - Gait disturbance [None]
  - Drug level increased [None]

NARRATIVE: CASE EVENT DATE: 20140718
